FAERS Safety Report 6804129-X (Version None)
Quarter: 2010Q2

REPORT INFORMATION
  Report Type: 
  Country: None (occurrence: None)
  Receive Date: 20100628
  Receipt Date: 20070324
  Transmission Date: 20101027
  Serious: No
  Sender: FDA-Public Use
  Company Number: US-PFIZER INC-2006144809

PATIENT
  Sex: Female
  Weight: 65.77 kg

DRUGS (10)
  1. CADUET [Suspect]
     Indication: HYPERTENSION
     Dosage: 5/10MG
     Dates: start: 20061105, end: 20061115
  2. CADUET [Suspect]
     Indication: BLOOD CHOLESTEROL INCREASED
  3. NORVASC [Suspect]
     Indication: HYPERTENSION
     Route: 048
     Dates: start: 20010101
  4. LIPITOR [Suspect]
     Indication: BLOOD CHOLESTEROL INCREASED
     Route: 048
     Dates: start: 20010101
  5. VICODIN [Concomitant]
  6. XANAX [Concomitant]
  7. MULTIPLE VITAMINS [Concomitant]
  8. ALL OTHER THERAPEUTIC PRODUCTS [Concomitant]
  9. ACETYLSALICYLIC ACID [Concomitant]
  10. SENNA [Concomitant]

REACTIONS (8)
  - ABDOMINAL PAIN [None]
  - DIZZINESS [None]
  - HEADACHE [None]
  - HYPOPHAGIA [None]
  - MALAISE [None]
  - MIDDLE INSOMNIA [None]
  - NAUSEA [None]
  - PALPITATIONS [None]
